FAERS Safety Report 6136708-X (Version None)
Quarter: 2009Q1

REPORT INFORMATION
  Report Type: 
  Country: None (occurrence: None)
  Receive Date: 20090330
  Receipt Date: 20090319
  Transmission Date: 20090719
  Serious: Yes (Other)
  Sender: FDA-Public Use
  Company Number: PHEH2009US02805

PATIENT
  Sex: Female

DRUGS (1)
  1. VIVELLE-DOT [Suspect]
     Dosage: 0.037 MG, UNK
     Dates: start: 20050101

REACTIONS (3)
  - BREAST PAIN [None]
  - DRUG INEFFECTIVE [None]
  - HYSTERECTOMY [None]
